FAERS Safety Report 8935247 (Version 2)
Quarter: 2013Q2

REPORT INFORMATION
  Report Type: Spontaneous
  Country: GB (occurrence: GB)
  Receive Date: 20121129
  Receipt Date: 20130603
  Transmission Date: 20140414
  Serious: Yes (Other)
  Sender: FDA-Public Use
  Company Number: PHFR2012GB006155

PATIENT
  Age: 78 Year
  Sex: Female

DRUGS (6)
  1. INFLUENZA VIRUS VACCINE NOS [Suspect]
     Indication: IMMUNISATION
     Dosage: 1 DF
     Route: 030
  2. WARFARIN [Interacting]
  3. METFORMIN [Concomitant]
  4. RAMIPRIL [Concomitant]
  5. SIMVASTATIN [Concomitant]
  6. SOLIFENACIN SUCCINATE [Concomitant]

REACTIONS (3)
  - International normalised ratio increased [Recovering/Resolving]
  - Drug interaction [Unknown]
  - Medication error [Unknown]
